FAERS Safety Report 23476961 (Version 2)
Quarter: 2024Q1

REPORT INFORMATION
  Report Type: Report from Study
  Country: JP (occurrence: JP)
  Receive Date: 20240204
  Receipt Date: 20240225
  Transmission Date: 20240409
  Serious: Yes (Life-Threatening)
  Sender: FDA-Public Use
  Company Number: JP-002147023-NVSJ2024JP001677

PATIENT
  Age: 21 Year
  Sex: Male

DRUGS (2)
  1. SCEMBLIX [Suspect]
     Active Substance: ASCIMINIB HYDROCHLORIDE
     Indication: Chronic myeloid leukaemia
     Dosage: UNK
     Route: 048
  2. SCEMBLIX [Suspect]
     Active Substance: ASCIMINIB HYDROCHLORIDE
     Dosage: 80 MG
     Route: 048
     Dates: start: 20230201, end: 20231219

REACTIONS (2)
  - Chronic myeloid leukaemia [Recovered/Resolved]
  - Malignant neoplasm progression [Recovered/Resolved]

NARRATIVE: CASE EVENT DATE: 20231206
